FAERS Safety Report 9278073 (Version 2)
Quarter: 2013Q2

REPORT INFORMATION
  Report Type: Spontaneous
  Country: US (occurrence: US)
  Receive Date: 20130508
  Receipt Date: 20130514
  Transmission Date: 20140414
  Serious: Yes (Other)
  Sender: FDA-Public Use
  Company Number: US-SANOFI-AVENTIS-2013SA046663

PATIENT
  Sex: Male

DRUGS (4)
  1. AMARYL [Suspect]
  2. METFORMIN [Suspect]
  3. GLIPIZIDE [Suspect]
  4. CHOLESTEROL [Concomitant]

REACTIONS (2)
  - Weight decreased [Unknown]
  - Hyperglycaemia [Unknown]
